FAERS Safety Report 4368686-8 (Version None)
Quarter: 2004Q2

REPORT INFORMATION
  Report Type: 
  Country: None (occurrence: None)
  Receive Date: 20040601
  Receipt Date: 20040601
  Transmission Date: 20050107
  Serious: No
  Sender: FDA-Public Use
  Company Number: None

PATIENT
  Sex: Male
  Weight: 74 kg

DRUGS (4)
  1. CARBOPLATIN [Suspect]
     Dosage: 729 MG
     Dates: end: 20040421
  2. CELEBREX [Suspect]
     Dosage: 10400 MG
  3. GEMCITABINE [Suspect]
     Dosage: 3690 MG
     Dates: end: 20040428
  4. ZILEUTON [Suspect]
     Dosage: 33600 MG

REACTIONS (6)
  - DEHYDRATION [None]
  - GANGRENE [None]
  - INSOMNIA [None]
  - MARKEDLY REDUCED DIETARY INTAKE [None]
  - NEUTROPENIA [None]
  - THROMBOCYTOPENIA [None]
